FAERS Safety Report 4925360-4 (Version None)
Quarter: 2006Q1

REPORT INFORMATION
  Report Type: 
  Country: None (occurrence: None)
  Receive Date: 20060228
  Receipt Date: 20050207
  Transmission Date: 20060701
  Serious: No
  Sender: FDA-Public Use
  Company Number: US-GLAXOSMITHKLINE-A0544264A

PATIENT
  Age: 20 Year
  Sex: Female

DRUGS (2)
  1. LAMICTAL [Suspect]
     Indication: BIPOLAR DISORDER
     Dosage: 25MG PER DAY
     Route: 048
     Dates: start: 20050101, end: 20050201
  2. ANTIDEPRESSANT [Concomitant]

REACTIONS (5)
  - CHAPPED LIPS [None]
  - FLUSHING [None]
  - LYMPHADENOPATHY [None]
  - MOUTH ULCERATION [None]
  - RASH [None]
